FAERS Safety Report 10150854 (Version 1)
Quarter: 2014Q2

REPORT INFORMATION
  Report Type: Not Available
  Country: US (occurrence: US)
  Receive Date: 20140502
  Receipt Date: 20140502
  Transmission Date: 20141212
  Serious: Yes (Other)
  Sender: FDA-Public Use
  Company Number: US-ABBVIE-14P-163-1230084-00

PATIENT
  Sex: Male

DRUGS (1)
  1. DEPAKOTE [Suspect]
     Indication: MATERNAL EXPOSURE TIMING UNSPECIFIED
     Route: 064

REACTIONS (11)
  - Attention deficit/hyperactivity disorder [Unknown]
  - Abnormal behaviour [Unknown]
  - Foetal exposure during pregnancy [Unknown]
  - Multiple injuries [Unknown]
  - Physical disability [Unknown]
  - Deformity [Unknown]
  - Pain [Unknown]
  - Anhedonia [Unknown]
  - Loss of employment [Unknown]
  - Social problem [Unknown]
  - Life expectancy shortened [Unknown]
